FAERS Safety Report 8709527 (Version 2)
Quarter: 2013Q3

REPORT INFORMATION
  Report Type: Spontaneous
  Country: FR (occurrence: None)
  Receive Date: 20120720
  Receipt Date: 20130809
  Transmission Date: 20140515
  Serious: Yes (Life-Threatening, Hospitalization, Other)
  Sender: FDA-Public Use
  Company Number: 1346014

PATIENT
  Age: 59 Year
  Sex: Female

DRUGS (7)
  1. PENTOSTATIN [Suspect]
     Indication: HAIRY CELL LEUKAEMIA
     Dosage: 0.2857 MG/M^2 (4 MG/M^2, 1 IN 14 DAYS), 9 COURSES
     Route: 042
     Dates: start: 20021222, end: 20030522
  2. COTAREG [Concomitant]
  3. ACTIVELLE [Concomitant]
  4. BROMAZEPAM [Concomitant]
  5. TETRAZEPAM [Concomitant]
  6. SPASFON [Concomitant]
  7. IXPRIM [Concomitant]

REACTIONS (4)
  - Bile duct cancer [None]
  - Metastases to lung [None]
  - Hepatomegaly [None]
  - Metastases to liver [None]
